FAERS Safety Report 5719029-6 (Version None)
Quarter: 2008Q2

REPORT INFORMATION
  Report Type: 
  Country: None (occurrence: None)
  Receive Date: 20080425
  Receipt Date: 20080422
  Transmission Date: 20081010
  Serious: Yes (Hospitalization)
  Sender: FDA-Public Use
  Company Number: PHEH2008US03654

PATIENT
  Sex: Male
  Weight: 90.249 kg

DRUGS (15)
  1. EXELON [Suspect]
     Indication: DEMENTIA ALZHEIMER'S TYPE
     Dosage: 4.6 MG, UNK
     Route: 062
     Dates: start: 20080305, end: 20080306
  2. PRILOSEC [Concomitant]
     Dosage: 20 MG, UNK
  3. KLOR-CON [Concomitant]
  4. BUMEX [Concomitant]
     Dosage: 1 MG, UNK
  5. ASPIRIN [Concomitant]
  6. ZETIA [Concomitant]
     Dosage: 10 MG, UNK
  7. PLAVIX [Concomitant]
  8. COREG [Concomitant]
  9. LIPITOR [Concomitant]
  10. ISORDIL [Concomitant]
  11. NAPROXEN [Concomitant]
  12. LIPITOR [Concomitant]
  13. CIPRO [Concomitant]
  14. ALBUTEROL [Concomitant]
  15. GLUCOPHAGE [Suspect]

REACTIONS (1)
  - AGGRESSION [None]
